FAERS Safety Report 13799864 (Version 1)
Quarter: 2017Q3

REPORT INFORMATION
  Report Type: Spontaneous
  Country: US (occurrence: US)
  Receive Date: 20170727
  Receipt Date: 20170727
  Transmission Date: 20171127
  Serious: Yes (Other)
  Sender: FDA-Public Use
  Company Number: None

PATIENT
  Age: 74 Year
  Sex: Female
  Weight: 86 kg

DRUGS (9)
  1. XGEVA [Concomitant]
     Active Substance: DENOSUMAB
  2. IBRANCE [Suspect]
     Active Substance: PALBOCICLIB
     Indication: BREAST CANCER FEMALE
     Route: 048
     Dates: start: 20161206, end: 20170720
  3. LISINOPRIL. [Concomitant]
     Active Substance: LISINOPRIL
  4. GABAPENTIN. [Concomitant]
     Active Substance: GABAPENTIN
  5. LEVOTHYROXINE. [Concomitant]
     Active Substance: LEVOTHYROXINE
  6. FASLODEX [Concomitant]
     Active Substance: FULVESTRANT
  7. ASPIRIN. [Concomitant]
     Active Substance: ASPIRIN
  8. TRAMADOL. [Concomitant]
     Active Substance: TRAMADOL
  9. IBUPROFEN. [Concomitant]
     Active Substance: IBUPROFEN

REACTIONS (2)
  - Therapy cessation [None]
  - Neutropenia [None]

NARRATIVE: CASE EVENT DATE: 20170720
